FAERS Safety Report 7538618-X (Version None)
Quarter: 2011Q2

REPORT INFORMATION
  Report Type: 
  Country: None (occurrence: None)
  Receive Date: 20110610
  Receipt Date: 20110603
  Transmission Date: 20111010
  Serious: No
  Sender: FDA-Public Use
  Company Number: US-BIOGENIDEC-2011BI020726

PATIENT
  Sex: Female

DRUGS (2)
  1. TYSABRI [Suspect]
     Indication: MULTIPLE SCLEROSIS
     Route: 042
     Dates: start: 20110302
  2. TYSABRI [Suspect]
     Route: 042
     Dates: start: 20050110

REACTIONS (3)
  - HEMIPARESIS [None]
  - GAIT DISTURBANCE [None]
  - BALANCE DISORDER [None]
